FAERS Safety Report 5920190-9 (Version None)
Quarter: 2008Q4

REPORT INFORMATION
  Report Type: 
  Country: None (occurrence: None)
  Receive Date: 20081015
  Receipt Date: 20081015
  Transmission Date: 20090506
  Serious: Yes (Hospitalization)
  Sender: FDA-Public Use
  Company Number: None

PATIENT
  Age: 73 Year
  Sex: Male

DRUGS (2)
  1. WARFARIN SODIUM [Suspect]
     Indication: ATRIAL FIBRILLATION
     Dates: start: 20080831, end: 20080913
  2. ENOXAPARIN SODIUM [Suspect]
     Dosage: 90 MG BID SQ
     Route: 058
     Dates: start: 20080903, end: 20080909

REACTIONS (5)
  - ANAEMIA [None]
  - HAEMORRHAGE [None]
  - INTERNATIONAL NORMALISED RATIO ABNORMAL [None]
  - PERICARDIAL HAEMORRHAGE [None]
  - RENAL FAILURE ACUTE [None]
